FAERS Safety Report 20236257 (Version 1)
Quarter: 2021Q4

REPORT INFORMATION
  Report Type: Spontaneous
  Country: US (occurrence: US)
  Receive Date: 20211228
  Receipt Date: 20211228
  Transmission Date: 20220304
  Serious: No
  Sender: FDA-Public Use
  Company Number: US-CELLTRION INC.-2021US014166

PATIENT

DRUGS (1)
  1. TRUXIMA [Suspect]
     Active Substance: RITUXIMAB-ABBS
     Indication: Pemphigus
     Dosage: 1000 MG DAY 1 AND DAY 15 REPEAT IN 6 MONTHS
     Dates: start: 20211007

REACTIONS (1)
  - Off label use [Unknown]
